FAERS Safety Report 18497179 (Version 1)
Quarter: 2020Q4

REPORT INFORMATION
  Report Type: Spontaneous
  Country: GB (occurrence: GB)
  Receive Date: 20201112
  Receipt Date: 20201112
  Transmission Date: 20210114
  Serious: Yes (Other)
  Sender: FDA-Public Use
  Company Number: NVSC2020GB299646

PATIENT
  Age: 1 Year
  Sex: Female
  Weight: 11 kg

DRUGS (7)
  1. ABIDEC [Concomitant]
     Indication: PRODUCT USED FOR UNKNOWN INDICATION
     Dosage: 0.6 ML, QD
     Route: 065
     Dates: start: 20191230
  2. NUTRITION SUPPLEMENTS [Concomitant]
     Active Substance: DIETARY SUPPLEMENT
     Dosage: 800 ML, QD
     Route: 065
     Dates: start: 20200721, end: 20200811
  3. LANSOPRAZOLE. [Concomitant]
     Active Substance: LANSOPRAZOLE
     Indication: PRODUCT USED FOR UNKNOWN INDICATION
     Dosage: 5.7 MG, QD
     Route: 065
     Dates: start: 20191230
  4. SODIUM FEREDETATE [Concomitant]
     Active Substance: SODIUM FEREDETATE
     Indication: PRODUCT USED FOR UNKNOWN INDICATION
     Dosage: 1 ML, QD
     Route: 065
     Dates: start: 20191230
  5. MONTELUKAST [Suspect]
     Active Substance: MONTELUKAST SODIUM
     Indication: PRODUCT USED FOR UNKNOWN INDICATION
     Dosage: 4 MG
     Route: 065
     Dates: start: 20201017
  6. NUTRITION SUPPLEMENTS [Concomitant]
     Active Substance: DIETARY SUPPLEMENT
     Indication: PRODUCT USED FOR UNKNOWN INDICATION
     Dosage: 2 DF, QD
     Route: 065
     Dates: start: 20200518, end: 20200924
  7. NUTRITION SUPPLEMENTS [Concomitant]
     Active Substance: DIETARY SUPPLEMENT
     Dosage: UNK (2-4 X200 ML PER DAY)
     Route: 065
     Dates: start: 20200924

REACTIONS (1)
  - Sleep terror [Recovering/Resolving]

NARRATIVE: CASE EVENT DATE: 20201017
